FAERS Safety Report 23353334 (Version 1)
Quarter: 2023Q4

REPORT INFORMATION
  Report Type: Spontaneous
  Country: FR (occurrence: FR)
  Receive Date: 20231231
  Receipt Date: 20231231
  Transmission Date: 20240110
  Serious: Yes (Other)
  Sender: FDA-Public Use
  Company Number: FR-AFSSAPS-PP2023001446

PATIENT
  Age: 54 Year
  Sex: Male
  Weight: 58 kg

DRUGS (1)
  1. VALACYCLOVIR HYDROCHLORIDE [Suspect]
     Active Substance: VALACYCLOVIR HYDROCHLORIDE
     Indication: Genital herpes
     Dosage: 500 MILLIGRAM, TWO TIMES A DAY (2 PAR JOUR)
     Route: 048
     Dates: start: 20231010, end: 20231011

REACTIONS (9)
  - Multisystem inflammatory syndrome [Unknown]
  - Loss of consciousness [Recovered/Resolved]
  - Abdominal discomfort [Recovering/Resolving]
  - Abdominal distension [Recovering/Resolving]
  - Diarrhoea [Recovering/Resolving]
  - Influenza like illness [Recovering/Resolving]
  - Constipation [Recovering/Resolving]
  - Haematuria [Unknown]
  - Vomiting [Recovered/Resolved]

NARRATIVE: CASE EVENT DATE: 20231011
